FAERS Safety Report 18579047 (Version 1)
Quarter: 2020Q4

REPORT INFORMATION
  Report Type: Spontaneous
  Country: US (occurrence: US)
  Receive Date: 20201204
  Receipt Date: 20201204
  Transmission Date: 20210114
  Serious: Yes (Hospitalization, Disabling, Other)
  Sender: FDA-Public Use
  Company Number: US-BAYER-2020-259109

PATIENT
  Age: 59 Year
  Sex: Male

DRUGS (1)
  1. GADOBUTROL. [Suspect]
     Active Substance: GADOBUTROL
     Indication: MAGNETIC RESONANCE IMAGING
     Dosage: UNK UNK, ONCE

REACTIONS (12)
  - Coma [None]
  - Nausea [None]
  - Incorrect route of product administration [None]
  - Facial paralysis [None]
  - Delirium [None]
  - Ischaemic cerebral infarction [None]
  - Hypertension [None]
  - Anxiety [None]
  - Status epilepticus [None]
  - Seizure [None]
  - Aphasia [None]
  - Brain oedema [None]
